FAERS Safety Report 4316033-X (Version None)
Quarter: 2004Q1

REPORT INFORMATION
  Report Type: 
  Country: None (occurrence: None)
  Receive Date: 20040311
  Receipt Date: 20040223
  Transmission Date: 20041129
  Serious: Yes (Hospitalization)
  Sender: FDA-Public Use
  Company Number: F04200400044

PATIENT
  Age: 78 Year
  Sex: Female

DRUGS (2)
  1. ARIXTRA (FONDAPARINUX SODIUM) SOLUTION 2.5 MG [Suspect]
     Indication: FEMUR FRACTURE
     Dosage: 2.5 MG OD SUBCUTANEOUS
     Route: 058
     Dates: start: 20030312, end: 20030320
  2. ARIXTRA (FONDAPARINUX SODIUM) SOLUTION 2.5 MG [Suspect]
     Indication: THROMBOSIS PROPHYLAXIS
     Dosage: 2.5 MG OD SUBCUTANEOUS
     Route: 058
     Dates: start: 20030312, end: 20030320

REACTIONS (1)
  - GASTROINTESTINAL HAEMORRHAGE [None]
